FAERS Safety Report 7113444-4 (Version None)
Quarter: 2010Q4

REPORT INFORMATION
  Report Type: 
  Country: None (occurrence: None)
  Receive Date: 20101119
  Receipt Date: 20101110
  Transmission Date: 20110411
  Serious: Yes (Other)
  Sender: FDA-Public Use
  Company Number: JP-SANOFI-AVENTIS-2010SA054275

PATIENT
  Age: 58 Year
  Sex: Female
  Weight: 46 kg

DRUGS (3)
  1. MYSLEE [Suspect]
     Indication: INSOMNIA
     Route: 048
     Dates: start: 20020927, end: 20100826
  2. HOCHUUEKKITOU [Concomitant]
     Indication: CHRONIC HEPATITIS
     Route: 048
     Dates: start: 19990122
  3. URSODIOL [Concomitant]
     Indication: CHRONIC HEPATITIS
     Route: 048
     Dates: start: 20010626

REACTIONS (3)
  - AMNESIA [None]
  - DELIRIUM [None]
  - INCORRECT DRUG ADMINISTRATION DURATION [None]
